FAERS Safety Report 5603138-6 (Version None)
Quarter: 2008Q1

REPORT INFORMATION
  Report Type: 
  Country: None (occurrence: None)
  Receive Date: 20080125
  Receipt Date: 20080115
  Transmission Date: 20080703
  Serious: Yes (Other)
  Sender: FDA-Public Use
  Company Number: CA-PFIZER INC-2008005658

PATIENT
  Age: 76 Year
  Sex: Male

DRUGS (2)
  1. CHANTIX [Suspect]
     Dosage: TEXT:ONCE
     Route: 048
     Dates: start: 20071201, end: 20071201
  2. ATIVAN [Concomitant]

REACTIONS (1)
  - DEPRESSED LEVEL OF CONSCIOUSNESS [None]
